FAERS Safety Report 7883222-7 (Version None)
Quarter: 2011Q4

REPORT INFORMATION
  Report Type: 
  Country: None (occurrence: None)
  Receive Date: 20111031
  Receipt Date: 20111031
  Transmission Date: 20120403
  Serious: No
  Sender: FDA-Public Use
  Company Number: None

PATIENT
  Sex: Female
  Weight: 77.3 kg

DRUGS (1)
  1. DILTIAZEM [Suspect]

REACTIONS (3)
  - ILL-DEFINED DISORDER [None]
  - PRODUCT SUBSTITUTION ISSUE [None]
  - CONSTIPATION [None]
